FAERS Safety Report 12693181 (Version 3)
Quarter: 2017Q1

REPORT INFORMATION
  Report Type: Spontaneous
  Country: FR (occurrence: FR)
  Receive Date: 20160829
  Receipt Date: 20170223
  Transmission Date: 20170428
  Serious: Yes (Other)
  Sender: FDA-Public Use
  Company Number: FR-ASTELLAS-2016US026465

PATIENT
  Age: 66 Year
  Sex: Male

DRUGS (9)
  1. MIRCERA [Concomitant]
     Active Substance: METHOXY POLYETHYLENE GLYCOL-EPOETIN BETA
     Indication: RED BLOOD CELL ABNORMALITY
     Dosage: UNK (0.075 UNITS NOT REPORTED), MONTHLY
     Route: 065
  2. SODIUM BICARBONATE. [Concomitant]
     Active Substance: SODIUM BICARBONATE
     Indication: PRODUCT USED FOR UNKNOWN INDICATION
     Dosage: 1 DF (500 UNITS NOT REPORTED),  ONE ON MORNING AND ONE ON EVENING
     Route: 048
     Dates: start: 2008
  3. ADVAGRAF [Suspect]
     Active Substance: TACROLIMUS
     Indication: PROPHYLAXIS AGAINST TRANSPLANT REJECTION
     Dosage: UNK, UNKNOWN FREQ.
     Route: 048
     Dates: start: 2012
  4. CELLCEPT [Suspect]
     Active Substance: MYCOPHENOLATE MOFETIL\MYCOPHENOLATE MOFETIL HYDROCHLORIDE
     Indication: PROPHYLAXIS AGAINST TRANSPLANT REJECTION
     Route: 048
     Dates: start: 200812
  5. ATACAND [Concomitant]
     Active Substance: CANDESARTAN CILEXETIL
     Indication: BLOOD PRESSURE ABNORMAL
     Dosage: 1 DF (8 UNITS NOT REPORTED), ON MORNING ONCE DAILY
     Route: 048
     Dates: start: 2008
  6. ALPRESS LP [Concomitant]
     Active Substance: PRAZOSIN HYDROCHLORIDE
     Indication: BLOOD PRESSURE ABNORMAL
     Route: 048
  7. RYTHMOL                            /00546302/ [Concomitant]
     Indication: BLOOD PRESSURE ABNORMAL
     Dosage: 0.5 ON MORNING AND 0.5 ON EVENING (300)
     Route: 048
     Dates: start: 2008
  8. ZYLORIC [Concomitant]
     Active Substance: ALLOPURINOL
     Indication: BLOOD URIC ACID ABNORMAL
     Dosage: 1 DF (200 UNITS NOT REPORTED), ON MORNING
     Route: 048
     Dates: start: 2008
  9. BURINEX [Concomitant]
     Active Substance: BUMETANIDE
     Indication: DIURETIC THERAPY
     Dosage: 1 DF, ONCE DAILY ON MORNING
     Route: 048
     Dates: start: 2008

REACTIONS (3)
  - Graft loss [Not Recovered/Not Resolved]
  - Diarrhoea [Recovering/Resolving]
  - Weight decreased [Recovering/Resolving]

NARRATIVE: CASE EVENT DATE: 201604
